FAERS Safety Report 7198966-2 (Version None)
Quarter: 2010Q4

REPORT INFORMATION
  Report Type: 
  Country: None (occurrence: None)
  Receive Date: 20101228
  Receipt Date: 20101223
  Transmission Date: 20110411
  Serious: Yes (Hospitalization, Other)
  Sender: FDA-Public Use
  Company Number: ES-BIOGENIDEC-2010BI031019

PATIENT
  Age: 45 Year
  Sex: Female

DRUGS (5)
  1. TYSABRI [Suspect]
     Indication: MULTIPLE SCLEROSIS
     Route: 042
     Dates: start: 20090201, end: 20090601
  2. TYSABRI [Suspect]
     Dates: start: 20091022
  3. METFORMIN HCL [Concomitant]
  4. INSULIN [Concomitant]
  5. ACETYLSALICYLIC ACID [Concomitant]

REACTIONS (3)
  - CONVULSION [None]
  - MULTIPLE SCLEROSIS [None]
  - RESPIRATORY TRACT INFECTION VIRAL [None]
